FAERS Safety Report 4432720-7 (Version None)
Quarter: 2004Q3

REPORT INFORMATION
  Report Type: 
  Country: None (occurrence: None)
  Receive Date: 20040820
  Receipt Date: 20040809
  Transmission Date: 20050211
  Serious: Yes (Hospitalization)
  Sender: FDA-Public Use
  Company Number: GBR-2002-0000106

PATIENT
  Age: 57 Year
  Sex: Male

DRUGS (9)
  1. OXYNORM CAPSULES (OXYCODONE HYDROCHLORIDE) IR CAPSULE [Suspect]
     Indication: ABDOMINAL PAIN
     Dosage: 2.5 MG, Q4H, ORAL
     Route: 048
     Dates: start: 20020123, end: 20020125
  2. CO-CODAMOL (CODEINE PHOSPHATE, PARACETAMOL) [Suspect]
     Indication: ABDOMINAL PAIN
     Dosage: 2 TABLET, QID, ORAL
     Route: 048
     Dates: end: 20020123
  3. CO-DANTHRAMER SUSPENSION (DANTRON, POLOXAMER) [Concomitant]
  4. METOCLOPRAMIDE [Concomitant]
  5. OMEPRAZOLE [Concomitant]
  6. ACETAMINOPHEN [Concomitant]
  7. DIAMORPHINE (DIAMORPHINE) [Concomitant]
  8. ASILONE SUSPENSION (MAGNESIUM OXIDE, ALUMINIUM HYDROXIDE GEL, DRIED, S [Concomitant]
  9. SENNA (SENNA) [Concomitant]

REACTIONS (4)
  - ANGIONEUROTIC OEDEMA [None]
  - BRONCHOSPASM [None]
  - PRURITUS GENERALISED [None]
  - URTICARIA [None]
